FAERS Safety Report 4526927-8 (Version None)
Quarter: 2004Q4

REPORT INFORMATION
  Report Type: 
  Country: None (occurrence: None)
  Receive Date: 20041105
  Receipt Date: 20040914
  Transmission Date: 20050328
  Serious: No
  Sender: FDA-Public Use
  Company Number: 2004USFACT00025

PATIENT
  Age: 66 Year
  Sex: Female
  Weight: 54.4 kg

DRUGS (2)
  1. FACTIVE [Suspect]
     Indication: RESPIRATORY TRACT INFECTION BACTERIAL
     Dosage: 320.00 MG , QD, ORAL
     Route: 048
     Dates: start: 20040913, end: 20040914
  2. NEXIUM [Concomitant]

REACTIONS (4)
  - HOT FLUSH [None]
  - HYPOAESTHESIA ORAL [None]
  - NAUSEA [None]
  - PALPITATIONS [None]
